FAERS Safety Report 8669448 (Version 2)
Quarter: 2013Q4

REPORT INFORMATION
  Report Type: Spontaneous
  Country: US (occurrence: US)
  Receive Date: 20120718
  Receipt Date: 20131031
  Transmission Date: 20140711
  Serious: Yes (Other)
  Sender: FDA-Public Use
  Company Number: US-009507513-1207USA003898

PATIENT
  Sex: Female

DRUGS (1)
  1. SINGULAIR [Suspect]
     Dosage: UNK
     Route: 048

REACTIONS (3)
  - Epilepsy [Unknown]
  - Migraine [Unknown]
  - Depression [Unknown]
